FAERS Safety Report 6693870-8 (Version None)
Quarter: 2010Q2

REPORT INFORMATION
  Report Type: 
  Country: None (occurrence: None)
  Receive Date: 20100421
  Receipt Date: 20100415
  Transmission Date: 20101027
  Serious: Yes (Other)
  Sender: FDA-Public Use
  Company Number: 20108232

PATIENT
  Sex: Male

DRUGS (1)
  1. LIORESAL [Suspect]
     Indication: MUSCLE SPASTICITY
     Dosage: INTRATHECAL
     Route: 037

REACTIONS (5)
  - HYPOTONIA [None]
  - MEDICAL DEVICE COMPLICATION [None]
  - RESPIRATORY DISORDER [None]
  - SEDATION [None]
  - SOMNOLENCE [None]
